FAERS Safety Report 22078269 (Version 1)
Quarter: 2023Q1

REPORT INFORMATION
  Report Type: Spontaneous
  Country: CN (occurrence: CN)
  Receive Date: 20230309
  Receipt Date: 20230309
  Transmission Date: 20230417
  Serious: Yes (Hospitalization, Other)
  Sender: FDA-Public Use
  Company Number: CN-PFIZER INC-PV202300042271

PATIENT
  Age: 47 Year
  Sex: Female

DRUGS (3)
  1. PACLITAXEL [Suspect]
     Active Substance: PACLITAXEL
     Indication: Chemotherapy
     Dosage: 30 MG, 1X/DAY
     Route: 041
     Dates: start: 20230221, end: 20230221
  2. PACLITAXEL [Suspect]
     Active Substance: PACLITAXEL
     Dosage: 240 MG, 1X/DAY
     Route: 041
     Dates: start: 20230221, end: 20230221
  3. CARBOPLATIN [Suspect]
     Active Substance: CARBOPLATIN
     Indication: Chemotherapy
     Dosage: 650 MG, 1X/DAY
     Route: 041
     Dates: start: 20230221, end: 20230221

REACTIONS (1)
  - Drug-induced liver injury [Unknown]

NARRATIVE: CASE EVENT DATE: 20230221
